FAERS Safety Report 15480078 (Version 1)
Quarter: 2018Q4

REPORT INFORMATION
  Report Type: Spontaneous
  Country: US (occurrence: US)
  Receive Date: 20181009
  Receipt Date: 20181009
  Transmission Date: 20190205
  Serious: No
  Sender: FDA-Public Use
  Company Number: US-GLAXOSMITHKLINE-US2018GSK182277

PATIENT
  Sex: Female
  Weight: 62.59 kg

DRUGS (5)
  1. WELLBUTRIN XL [Suspect]
     Active Substance: BUPROPION HYDROCHLORIDE
     Indication: CATAPLEXY
     Dosage: 75 MG, UNK
  2. WELLBUTRIN XL [Suspect]
     Active Substance: BUPROPION HYDROCHLORIDE
     Indication: NARCOLEPSY
     Dosage: 300 MG, QD
     Route: 048
     Dates: start: 201801, end: 2018
  3. NALTREXONE [Suspect]
     Active Substance: NALTREXONE
     Indication: NARCOLEPSY
     Dosage: UNK
     Dates: start: 201801, end: 2018
  4. NALTREXONE [Suspect]
     Active Substance: NALTREXONE
     Indication: WAXY FLEXIBILITY
  5. OMEPRAZOLE. [Suspect]
     Active Substance: OMEPRAZOLE
     Indication: GASTROOESOPHAGEAL REFLUX DISEASE

REACTIONS (4)
  - Product use in unapproved indication [Not Recovered/Not Resolved]
  - Vomiting [Unknown]
  - Drug ineffective [Unknown]
  - Gastrooesophageal reflux disease [Unknown]

NARRATIVE: CASE EVENT DATE: 2018
